FAERS Safety Report 8761199 (Version 4)
Quarter: 2016Q3

REPORT INFORMATION
  Report Type: Spontaneous
  Country: US (occurrence: US)
  Receive Date: 20120830
  Receipt Date: 20160705
  Transmission Date: 20161109
  Serious: Yes (Hospitalization, Disabling, Other)
  Sender: FDA-Public Use
  Company Number: US-009507513-1208USA008535

PATIENT
  Sex: Female

DRUGS (1)
  1. FOSAMAX [Suspect]
     Active Substance: ALENDRONATE SODIUM
     Indication: OSTEOPOROSIS
     Dosage: 70 MG, UNK
     Route: 048
     Dates: start: 2000, end: 2010

REACTIONS (14)
  - Adverse event [Unknown]
  - Oophorectomy bilateral [Unknown]
  - Coronary artery disease [Unknown]
  - Anaemia postoperative [Unknown]
  - Angiopathy [Unknown]
  - Hysterectomy [Unknown]
  - Deep vein thrombosis [Unknown]
  - Osteoarthritis [Unknown]
  - Anxiety disorder [Unknown]
  - Wound dehiscence [Recovered/Resolved]
  - Intestinal resection [Unknown]
  - Coronary arterial stent insertion [Unknown]
  - Cardiac failure congestive [Unknown]
  - Femur fracture [Not Recovered/Not Resolved]

NARRATIVE: CASE EVENT DATE: 2009
